FAERS Safety Report 7775547-0 (Version None)
Quarter: 2011Q3

REPORT INFORMATION
  Report Type: 
  Country: None (occurrence: None)
  Receive Date: 20110923
  Receipt Date: 20110913
  Transmission Date: 20111222
  Serious: Yes (Other)
  Sender: FDA-Public Use
  Company Number: US-JNJFOC-20110906194

PATIENT
  Sex: Female

DRUGS (6)
  1. LORTAB [Concomitant]
     Indication: PAIN
     Route: 048
     Dates: end: 20110901
  2. NUCYNTA [Suspect]
     Indication: PROCEDURAL PAIN
     Route: 048
     Dates: start: 20110912
  3. NUCYNTA [Suspect]
     Dosage: 1 EVERY 8 HOURS AS NEEDED
     Route: 048
     Dates: start: 20110801, end: 20110901
  4. NAPROXEN [Concomitant]
     Route: 048
  5. REMICADE [Suspect]
     Indication: RHEUMATOID ARTHRITIS
     Route: 042
  6. SYNTHROID [Concomitant]
     Indication: HYPERTHYROIDISM
     Route: 048

REACTIONS (6)
  - PROCEDURAL PAIN [None]
  - MALAISE [None]
  - ARTHRODESIS [None]
  - NAUSEA [None]
  - INFLUENZA [None]
  - HEADACHE [None]
